FAERS Safety Report 6217030-X (Version None)
Quarter: 2009Q2

REPORT INFORMATION
  Report Type: 
  Country: None (occurrence: None)
  Receive Date: 20090604
  Receipt Date: 20090520
  Transmission Date: 20091009
  Serious: Yes (Hospitalization, Other)
  Sender: FDA-Public Use
  Company Number: 230025K08IRL

PATIENT
  Age: 32 Year
  Sex: Female
  Weight: 51 kg

DRUGS (3)
  1. REBIF [Suspect]
     Indication: MULTIPLE SCLEROSIS
     Dosage: 22 MCG, 3 IN 1 WEEKS; 44 MCG, 3 IN 1 WEEKS
     Dates: start: 19981108, end: 20080801
  2. REBIF [Suspect]
     Indication: MULTIPLE SCLEROSIS
     Dosage: 22 MCG, 3 IN 1 WEEKS; 44 MCG, 3 IN 1 WEEKS
     Dates: start: 20080822
  3. TEGRETOL [Concomitant]

REACTIONS (6)
  - BALANCE DISORDER [None]
  - FATIGUE [None]
  - GRAND MAL CONVULSION [None]
  - LOSS OF CONSCIOUSNESS [None]
  - MUSCLE SPASTICITY [None]
  - POSTICTAL STATE [None]
